FAERS Safety Report 23637063 (Version 4)
Quarter: 2024Q2

REPORT INFORMATION
  Report Type: Report from Study
  Country: US (occurrence: US)
  Receive Date: 20240315
  Receipt Date: 20240603
  Transmission Date: 20240716
  Serious: Yes (Hospitalization, Other)
  Sender: FDA-Public Use
  Company Number: US-PFIZER INC-PV202300203643

PATIENT
  Age: 82 Year
  Sex: Female

DRUGS (4)
  1. IBRANCE [Suspect]
     Active Substance: PALBOCICLIB
     Indication: Breast cancer female
     Dosage: 21 DAYS ON AND 7 DAYS OFF/ 1 CAPSULE 1 TIME A DAY FOR 21 DAYS OF A 28 DAY CYCLE
     Route: 048
     Dates: start: 202310
  2. IBRANCE [Suspect]
     Active Substance: PALBOCICLIB
     Dosage: 125MG CAPSULE BY MOUTH ONCE DAILY FOR 21/28 DAYS
     Route: 048
     Dates: start: 20240412
  3. IBRANCE [Suspect]
     Active Substance: PALBOCICLIB
     Dosage: 100 MG CAPSULE BY MOUTH DAILY FOR 21 DAYS ON/ 7 DAYS OFF
     Route: 048
     Dates: start: 20240510
  4. EXEMESTANE [Concomitant]
     Active Substance: EXEMESTANE
     Dosage: UNK

REACTIONS (4)
  - Blood calcium decreased [Unknown]
  - Haemoglobin decreased [Unknown]
  - Headache [Not Recovered/Not Resolved]
  - Fatigue [Not Recovered/Not Resolved]
